FAERS Safety Report 5591662-4 (Version None)
Quarter: 2007Q4

REPORT INFORMATION
  Report Type: 
  Country: None (occurrence: None)
  Receive Date: 20071217
  Receipt Date: 20070821
  Transmission Date: 20080405
  Serious: No
  Sender: FDA-Public Use
  Company Number: BDI-010084

PATIENT
  Age: 88 Year
  Sex: Female
  Weight: 78 kg

DRUGS (2)
  1. MULTIHANCE [Suspect]
     Indication: INCONTINENCE
     Dosage: 7 ML ONCE IV
     Route: 042
     Dates: start: 20070814, end: 20070814
  2. MULTIHANCE [Suspect]
     Indication: NUCLEAR MAGNETIC RESONANCE IMAGING
     Dosage: 7 ML ONCE IV
     Route: 042
     Dates: start: 20070814, end: 20070814

REACTIONS (4)
  - DYSKINESIA [None]
  - FEELING COLD [None]
  - HYPERSENSITIVITY [None]
  - TREMOR [None]
